FAERS Safety Report 23046367 (Version 3)
Quarter: 2023Q4

REPORT INFORMATION
  Report Type: Spontaneous
  Country: JP (occurrence: None)
  Receive Date: 20231009
  Receipt Date: 20231113
  Transmission Date: 20240109
  Serious: Yes (Death)
  Sender: FDA-Public Use
  Company Number: 2023A227868

PATIENT
  Age: 80 Year
  Sex: Male

DRUGS (1)
  1. ONDEXXYA [Suspect]
     Active Substance: ANDEXANET ALFA
     Indication: Subdural haematoma
     Dosage: INTRAVENOUSLY ADMINISTERED WITH METHOD A (400 MG INTRAVENOUSLY AT A RATE OF 30 MG/MIN, FOLLOWED B...
     Route: 042
     Dates: start: 202302, end: 202302

REACTIONS (1)
  - Pulseless electrical activity [Fatal]

NARRATIVE: CASE EVENT DATE: 20230101
